FAERS Safety Report 14238303 (Version 2)
Quarter: 2017Q4

REPORT INFORMATION
  Report Type: Spontaneous
  Country: US (occurrence: US)
  Receive Date: 20171130
  Receipt Date: 20171205
  Transmission Date: 20180321
  Serious: No
  Sender: FDA-Public Use
  Company Number: US-PFIZER INC-2017512591

PATIENT
  Age: 78 Year
  Sex: Female
  Weight: 54.43 kg

DRUGS (4)
  1. ATROPINE SULFATE/DIPHENOXYLATE HYDROCHLORIDE [Suspect]
     Active Substance: ATROPINE SULFATE\DIPHENOXYLATE HYDROCHLORIDE
     Indication: IRRITABLE BOWEL SYNDROME
     Dosage: 1 DF, AS NEEDED (ONE TABLET BY MOUTH FOUR TIMES A DAY AS NEEDED NOT TO TAKE MORE THAN 6 TABS A DAY)
     Route: 048
  2. VITAMIN C [Concomitant]
     Active Substance: ASCORBIC ACID
     Dosage: 500 MG, 1X/DAY
     Route: 048
  3. CALCIUM [Concomitant]
     Active Substance: CALCIUM
     Dosage: 600 MG, 1X/DAY
     Route: 048
  4. ASPIRIN /00002701/ [Concomitant]
     Active Substance: ASPIRIN
     Indication: BLOOD DISORDER
     Dosage: 81 MG, 1X/DAY
     Route: 048

REACTIONS (2)
  - Vitamin D decreased [Unknown]
  - Product use in unapproved indication [Unknown]

NARRATIVE: CASE EVENT DATE: 201710
